FAERS Safety Report 6581927-1 (Version None)
Quarter: 2010Q1

REPORT INFORMATION
  Report Type: 
  Country: None (occurrence: None)
  Receive Date: 20100212
  Receipt Date: 20100212
  Transmission Date: 20100710
  Serious: No
  Sender: FDA-Public Use
  Company Number: None

PATIENT
  Age: 76 Year
  Sex: Male
  Weight: 88.4 kg

DRUGS (1)
  1. MEMANTINE [Suspect]
     Indication: DEMENTIA
     Dosage: 5 MG EVERY DAY PO
     Route: 048
     Dates: start: 20090921, end: 20090924

REACTIONS (1)
  - CONFUSIONAL STATE [None]
